FAERS Safety Report 19228372 (Version 1)
Quarter: 2021Q2

REPORT INFORMATION
  Report Type: Spontaneous
  Country: CN (occurrence: CN)
  Receive Date: 20210506
  Receipt Date: 20210506
  Transmission Date: 20210717
  Serious: Yes (Other)
  Sender: FDA-Public Use
  Company Number: CN-PFIZER INC-2021477368

PATIENT
  Age: 8 Year
  Sex: Female
  Weight: 27 kg

DRUGS (7)
  1. DEXAMETHASONE SODIUM PHOSPHATE. [Suspect]
     Active Substance: DEXAMETHASONE SODIUM PHOSPHATE
     Indication: ACUTE MYELOID LEUKAEMIA
     Dosage: 2.5 MG, 1X/DAY
     Route: 037
     Dates: start: 20210208, end: 20210208
  2. CYTOSAR [Suspect]
     Active Substance: CYTARABINE
     Dosage: 2 G, 2X/DAY
     Route: 041
     Dates: start: 20210209, end: 20210212
  3. METHOTREXATE. [Suspect]
     Active Substance: METHOTREXATE
     Indication: ACUTE MYELOID LEUKAEMIA
     Dosage: 12.5 MG, 1X/DAY
     Route: 037
     Dates: start: 20210208, end: 20210208
  4. ASPARAGINASE [Suspect]
     Active Substance: ASPARAGINASE
     Indication: ACUTE MYELOID LEUKAEMIA
     Dosage: 6000 IU, 1X/DAY
     Route: 030
     Dates: start: 20210212, end: 20210212
  5. CYTOSAR [Suspect]
     Active Substance: CYTARABINE
     Indication: ACUTE MYELOID LEUKAEMIA
     Dosage: 0.035 G, 1X/DAY
     Route: 037
     Dates: start: 20210208, end: 20210208
  6. GLUCOSE [Suspect]
     Active Substance: DEXTROSE
     Indication: ACUTE MYELOID LEUKAEMIA
     Dosage: 500 ML, 2X/DAY
     Route: 041
     Dates: start: 20210209, end: 20210212
  7. SODIUM CHLORIDE. [Suspect]
     Active Substance: SODIUM CHLORIDE
     Indication: ACUTE MYELOID LEUKAEMIA
     Dosage: 3 ML, 1X/DAY
     Route: 037
     Dates: start: 20210208, end: 20210208

REACTIONS (1)
  - Myelosuppression [Recovering/Resolving]

NARRATIVE: CASE EVENT DATE: 20210217
